FAERS Safety Report 14947049 (Version 1)
Quarter: 2018Q2

REPORT INFORMATION
  Report Type: Spontaneous
  Country: US (occurrence: US)
  Receive Date: 20180529
  Receipt Date: 20180529
  Transmission Date: 20180711
  Serious: No
  Sender: FDA-Public Use
  Company Number: US-SUNOVION-2018SUN002108

PATIENT
  Sex: Female
  Weight: 75.28 kg

DRUGS (1)
  1. LONHALA MAGNAIR [Suspect]
     Active Substance: GLYCOPYRROLATE
     Indication: LUNG NEOPLASM MALIGNANT
     Dosage: UNK, BID
     Route: 055
     Dates: start: 201805

REACTIONS (4)
  - Rash [Unknown]
  - Pruritus [Unknown]
  - Off label use [Unknown]
  - Dermatitis contact [Unknown]
